FAERS Safety Report 5011386-1 (Version None)
Quarter: 2006Q2

REPORT INFORMATION
  Report Type: 
  Country: None (occurrence: None)
  Receive Date: 20060524
  Receipt Date: 20060515
  Transmission Date: 20061013
  Serious: Yes (Other)
  Sender: FDA-Public Use
  Company Number: 2005149950

PATIENT
  Age: 17 Year
  Sex: Female
  Weight: 83.9154 kg

DRUGS (5)
  1. BENADRYL [Suspect]
     Indication: HYPERSENSITIVITY
     Dosage: MINIMUM DOSE FOR 3 DAYS, ORAL
     Route: 048
     Dates: start: 20050101
  2. PENICILLIN [Concomitant]
  3. PRENATAL VITAMINS (ASCORBIC ACID, BIOTIN, MINERALS NOS, NICOTINIC ACID [Concomitant]
  4. CALCIUM (CALCIUM) [Concomitant]
  5. AMOXICILLIN [Concomitant]

REACTIONS (3)
  - DRUG EXPOSURE DURING PREGNANCY [None]
  - INDUCED LABOUR [None]
  - PRE-ECLAMPSIA [None]
